FAERS Safety Report 8297024-3 (Version None)
Quarter: 2012Q2

REPORT INFORMATION
  Report Type: 
  Country: None (occurrence: None)
  Receive Date: 20120419
  Receipt Date: 20120416
  Transmission Date: 20120825
  Serious: Yes (Hospitalization, Other)
  Sender: FDA-Public Use
  Company Number: DE-AMGEN-DEUSP2011057834

PATIENT
  Age: 45 Year
  Sex: Female

DRUGS (2)
  1. PROLIA [Suspect]
     Indication: BREAST CANCER
     Dosage: UNK UNK, Q6MO
     Dates: start: 20110201
  2. FEMARA [Concomitant]

REACTIONS (1)
  - NON-HODGKIN'S LYMPHOMA [None]
